FAERS Safety Report 12991446 (Version 1)
Quarter: 2016Q4

REPORT INFORMATION
  Report Type: Spontaneous
  Country: DE (occurrence: DE)
  Receive Date: 20161201
  Receipt Date: 20161201
  Transmission Date: 20170207
  Serious: Yes (Disabling)
  Sender: FDA-Public Use
  Company Number: DE-MYLANLABS-2016M1052254

PATIENT

DRUGS (1)
  1. TERBINAFINE. [Suspect]
     Active Substance: TERBINAFINE
     Indication: ONYCHOMYCOSIS
     Dosage: DAILY DOSE: 1 DF DOSAGE FORM EVERY WEEKS
     Dates: start: 201601, end: 201608

REACTIONS (1)
  - Vitreous opacities [Not Recovered/Not Resolved]

NARRATIVE: CASE EVENT DATE: 20161021
